FAERS Safety Report 23123896 (Version 1)
Quarter: 2023Q4

REPORT INFORMATION
  Report Type: Spontaneous
  Country: CA (occurrence: CA)
  Receive Date: 20231030
  Receipt Date: 20231030
  Transmission Date: 20240109
  Serious: Yes (Life-Threatening, Hospitalization)
  Sender: FDA-Public Use
  Company Number: CA-002147023-NVSC2023CA223417

PATIENT
  Age: 37 Year
  Sex: Female

DRUGS (69)
  1. OMALIZUMAB [Suspect]
     Active Substance: OMALIZUMAB
     Indication: Urticaria
     Route: 065
  2. OMALIZUMAB [Suspect]
     Active Substance: OMALIZUMAB
     Indication: Chronic spontaneous urticaria
     Route: 065
  3. OMALIZUMAB [Suspect]
     Active Substance: OMALIZUMAB
     Indication: Angioedema
     Route: 065
  4. OMALIZUMAB [Suspect]
     Active Substance: OMALIZUMAB
     Indication: Anaphylactic reaction
     Route: 065
  5. OMALIZUMAB [Suspect]
     Active Substance: OMALIZUMAB
     Route: 065
  6. OMALIZUMAB [Suspect]
     Active Substance: OMALIZUMAB
     Route: 065
  7. OMALIZUMAB [Suspect]
     Active Substance: OMALIZUMAB
     Route: 065
  8. OMALIZUMAB [Suspect]
     Active Substance: OMALIZUMAB
     Route: 065
  9. OMALIZUMAB [Suspect]
     Active Substance: OMALIZUMAB
     Route: 065
  10. OMALIZUMAB [Suspect]
     Active Substance: OMALIZUMAB
     Route: 065
  11. OMALIZUMAB [Suspect]
     Active Substance: OMALIZUMAB
     Route: 065
  12. OMALIZUMAB [Suspect]
     Active Substance: OMALIZUMAB
     Route: 065
  13. OMALIZUMAB [Suspect]
     Active Substance: OMALIZUMAB
     Route: 065
  14. OMALIZUMAB [Suspect]
     Active Substance: OMALIZUMAB
     Route: 065
  15. OMALIZUMAB [Suspect]
     Active Substance: OMALIZUMAB
     Route: 065
  16. OMALIZUMAB [Suspect]
     Active Substance: OMALIZUMAB
     Route: 065
  17. OMALIZUMAB [Suspect]
     Active Substance: OMALIZUMAB
     Route: 065
  18. OMALIZUMAB [Suspect]
     Active Substance: OMALIZUMAB
     Route: 065
  19. OMALIZUMAB [Suspect]
     Active Substance: OMALIZUMAB
     Route: 065
  20. OMALIZUMAB [Suspect]
     Active Substance: OMALIZUMAB
     Route: 065
  21. OMALIZUMAB [Suspect]
     Active Substance: OMALIZUMAB
     Route: 065
  22. OMALIZUMAB [Suspect]
     Active Substance: OMALIZUMAB
     Route: 065
  23. OMALIZUMAB [Suspect]
     Active Substance: OMALIZUMAB
     Route: 065
  24. OMALIZUMAB [Suspect]
     Active Substance: OMALIZUMAB
     Route: 065
  25. OMALIZUMAB [Suspect]
     Active Substance: OMALIZUMAB
     Route: 065
  26. OMALIZUMAB [Suspect]
     Active Substance: OMALIZUMAB
     Route: 065
  27. OMALIZUMAB [Suspect]
     Active Substance: OMALIZUMAB
     Route: 065
  28. OMALIZUMAB [Suspect]
     Active Substance: OMALIZUMAB
     Route: 065
  29. OMALIZUMAB [Suspect]
     Active Substance: OMALIZUMAB
     Route: 065
  30. OMALIZUMAB [Suspect]
     Active Substance: OMALIZUMAB
     Route: 065
  31. OMALIZUMAB [Suspect]
     Active Substance: OMALIZUMAB
     Route: 065
  32. OMALIZUMAB [Suspect]
     Active Substance: OMALIZUMAB
     Route: 065
  33. OMALIZUMAB [Suspect]
     Active Substance: OMALIZUMAB
     Route: 065
  34. OMALIZUMAB [Suspect]
     Active Substance: OMALIZUMAB
     Route: 065
  35. OMALIZUMAB [Suspect]
     Active Substance: OMALIZUMAB
     Route: 065
  36. OMALIZUMAB [Suspect]
     Active Substance: OMALIZUMAB
     Route: 065
  37. OMALIZUMAB [Suspect]
     Active Substance: OMALIZUMAB
     Route: 065
  38. OMALIZUMAB [Suspect]
     Active Substance: OMALIZUMAB
     Route: 065
  39. OMALIZUMAB [Suspect]
     Active Substance: OMALIZUMAB
     Route: 065
  40. OMALIZUMAB [Suspect]
     Active Substance: OMALIZUMAB
     Route: 065
  41. OMALIZUMAB [Suspect]
     Active Substance: OMALIZUMAB
     Route: 065
  42. OMALIZUMAB [Suspect]
     Active Substance: OMALIZUMAB
     Route: 065
  43. OMALIZUMAB [Suspect]
     Active Substance: OMALIZUMAB
     Route: 065
  44. OMALIZUMAB [Suspect]
     Active Substance: OMALIZUMAB
     Route: 065
  45. OMALIZUMAB [Suspect]
     Active Substance: OMALIZUMAB
     Route: 065
  46. OMALIZUMAB [Suspect]
     Active Substance: OMALIZUMAB
     Route: 065
  47. OMALIZUMAB [Suspect]
     Active Substance: OMALIZUMAB
     Route: 065
  48. OMALIZUMAB [Suspect]
     Active Substance: OMALIZUMAB
     Route: 065
  49. OMALIZUMAB [Suspect]
     Active Substance: OMALIZUMAB
     Route: 065
  50. ONDANSETRON [Concomitant]
     Active Substance: ONDANSETRON
     Indication: Product used for unknown indication
     Dosage: UNK
  51. ACRIVASTINE [Concomitant]
     Active Substance: ACRIVASTINE
     Indication: Product used for unknown indication
     Dosage: UNK
  52. ACRIVASTINE [Concomitant]
     Active Substance: ACRIVASTINE
     Dosage: UNK
  53. ALLEGRA [Concomitant]
     Active Substance: FEXOFENADINE HYDROCHLORIDE
     Indication: Product used for unknown indication
     Dosage: UNK
  54. ATIVAN [Concomitant]
     Active Substance: LORAZEPAM
     Indication: Product used for unknown indication
     Dosage: UNK
  55. BILASTINE [Concomitant]
     Active Substance: BILASTINE
     Indication: Product used for unknown indication
     Dosage: UNK
  56. BILASTINE [Concomitant]
     Active Substance: BILASTINE
     Dosage: UNK
  57. CLARITIN [Concomitant]
     Active Substance: LORATADINE
     Indication: Product used for unknown indication
     Dosage: UNK
  58. EPIPEN [Concomitant]
     Active Substance: EPINEPHRINE
     Indication: Product used for unknown indication
     Dosage: 0.3 MG (AUTOINJECTOR, SOLUTION INTRAMUSCULAR)
  59. FAMOTIDINE [Concomitant]
     Active Substance: FAMOTIDINE
     Indication: Product used for unknown indication
     Dosage: UNK
  60. FLUCONAZOLE [Concomitant]
     Active Substance: FLUCONAZOLE
     Indication: Product used for unknown indication
     Dosage: UNK
  61. GABAPENTIN [Concomitant]
     Active Substance: GABAPENTIN
     Indication: Product used for unknown indication
     Dosage: UNK
  62. MEDROL [Concomitant]
     Active Substance: METHYLPREDNISOLONE
     Indication: Product used for unknown indication
     Dosage: UNK
  63. CROMOLYN SODIUM [Concomitant]
     Active Substance: CROMOLYN SODIUM
     Indication: Product used for unknown indication
     Dosage: UNK
  64. NAPROXEN SODIUM [Concomitant]
     Active Substance: NAPROXEN SODIUM
     Indication: Product used for unknown indication
     Dosage: UNK
  65. NAPROXEN SODIUM [Concomitant]
     Active Substance: NAPROXEN SODIUM
     Dosage: UNK
  66. NASONEX [Concomitant]
     Active Substance: MOMETASONE FUROATE
     Indication: Product used for unknown indication
     Dosage: UNK, SPRAY METERED DOSE
  67. RUPATADINE [Concomitant]
     Active Substance: RUPATADINE
     Indication: Product used for unknown indication
     Dosage: UNK
  68. VENTOLIN [Concomitant]
     Active Substance: ALBUTEROL SULFATE
     Indication: Product used for unknown indication
     Dosage: UNK
  69. ZANTAC [Concomitant]
     Active Substance: RANITIDINE HYDROCHLORIDE
     Indication: Product used for unknown indication
     Dosage: UNK

REACTIONS (25)
  - Arthralgia [Unknown]
  - Condition aggravated [Unknown]
  - Confusional state [Unknown]
  - Cough [Unknown]
  - Diarrhoea [Unknown]
  - Dizziness [Unknown]
  - Fall [Unknown]
  - Fatigue [Unknown]
  - Headache [Unknown]
  - Heart rate abnormal [Unknown]
  - Illness [Unknown]
  - Insomnia [Unknown]
  - Migraine [Unknown]
  - Muscle spasms [Unknown]
  - Nasal disorder [Unknown]
  - Nausea [Unknown]
  - Nerve compression [Unknown]
  - Neuralgia [Unknown]
  - Oral candidiasis [Unknown]
  - Sinus congestion [Unknown]
  - Sneezing [Unknown]
  - Stress [Unknown]
  - Myalgia [Unknown]
  - Anaphylactic reaction [Unknown]
  - Pyrexia [Unknown]
